FAERS Safety Report 9535831 (Version 1)
Quarter: 2013Q2

REPORT INFORMATION
  Report Type: Spontaneous
  Country: US (occurrence: None)
  Receive Date: 20130507
  Receipt Date: 20130507
  Transmission Date: 20140414
  Serious: Yes (Hospitalization)
  Sender: FDA-Public Use
  Company Number: PHEH2012US007668

PATIENT
  Age: 73 Year
  Sex: Male

DRUGS (5)
  1. TASIGNA (AMN107) CAPSULE [Suspect]
     Indication: CHRONIC MYELOID LEUKAEMIA
     Route: 048
     Dates: start: 20110801, end: 20120103
  2. ALLOPURINOL [Concomitant]
  3. MEGESTROL (MEGESTROL) [Concomitant]
  4. METFORMIN (METFORMIN) [Concomitant]
  5. LISINOPRIL (LISINOPRIL) [Concomitant]

REACTIONS (3)
  - Pancreatitis [None]
  - Urinary tract infection [None]
  - Weight decreased [None]
